FAERS Safety Report 5856560-7 (Version None)
Quarter: 2008Q3

REPORT INFORMATION
  Report Type: 
  Country: None (occurrence: None)
  Receive Date: 20080822
  Receipt Date: 20080822
  Transmission Date: 20090109
  Serious: Yes (Disabling)
  Sender: FDA-Public Use
  Company Number: None

PATIENT
  Sex: Male

DRUGS (1)
  1. ACTOS [Suspect]
     Indication: TYPE 2 DIABETES MELLITUS
     Dosage: 1 TAB DAILY
     Dates: start: 20070101, end: 20080101

REACTIONS (3)
  - RETINAL INJURY [None]
  - RETINAL OEDEMA [None]
  - WEIGHT INCREASED [None]
